FAERS Safety Report 10213891 (Version 1)
Quarter: 2014Q2

REPORT INFORMATION
  Report Type: Spontaneous
  Country: US (occurrence: US)
  Receive Date: 20140603
  Receipt Date: 20140603
  Transmission Date: 20141212
  Serious: No
  Sender: FDA-Public Use
  Company Number: US-ASTRAZENECA-2014SE36140

PATIENT
  Sex: Female
  Weight: 59 kg

DRUGS (1)
  1. PRILOSEC [Suspect]
     Route: 048

REACTIONS (4)
  - Abdominal pain upper [Unknown]
  - Dyspepsia [Unknown]
  - Hyperchlorhydria [Unknown]
  - Drug ineffective [Unknown]
